FAERS Safety Report 19515430 (Version 3)
Quarter: 2021Q3

REPORT INFORMATION
  Report Type: Spontaneous
  Country: GR (occurrence: GR)
  Receive Date: 20210709
  Receipt Date: 20210915
  Transmission Date: 20211014
  Serious: No
  Sender: FDA-Public Use
  Company Number: GR-ALLERGAN-2125139US

PATIENT
  Age: 45 Year
  Sex: Female

DRUGS (1)
  1. ASENAPINE MALEATE ? BP [Suspect]
     Active Substance: ASENAPINE MALEATE
     Indication: BORDERLINE PERSONALITY DISORDER
     Dosage: 5 MG

REACTIONS (3)
  - Product use in unapproved indication [Unknown]
  - Abdominal distension [Recovered/Resolved]
  - Face oedema [Recovered/Resolved]
